FAERS Safety Report 9102863 (Version 1)
Quarter: 2013Q1

REPORT INFORMATION
  Report Type: Report from Study
  Country: FR (occurrence: FR)
  Receive Date: 20130218
  Receipt Date: 20130218
  Transmission Date: 20140127
  Serious: Yes (Hospitalization, Other)
  Sender: FDA-Public Use
  Company Number: FR-ROCHE-1190387

PATIENT
  Age: 78 Year
  Sex: Female
  Weight: 85 kg

DRUGS (15)
  1. TOCILIZUMAB [Suspect]
     Indication: RHEUMATOID ARTHRITIS
     Route: 041
     Dates: start: 20111028
  2. TOCILIZUMAB [Suspect]
     Route: 041
     Dates: start: 20111125
  3. TOCILIZUMAB [Suspect]
     Route: 041
     Dates: start: 20111227
  4. TOCILIZUMAB [Suspect]
     Route: 041
     Dates: start: 20120531
  5. SALAZOPYRINE [Concomitant]
     Route: 065
  6. NOVOMIX [Concomitant]
  7. SECTRAL [Concomitant]
     Route: 065
  8. KARDEGIC [Concomitant]
     Route: 065
  9. RAMIPRIL [Concomitant]
     Route: 065
  10. AMLOR [Concomitant]
     Route: 065
  11. LASILIX [Concomitant]
     Route: 065
  12. CRESTOR [Concomitant]
     Route: 065
  13. INEXIUM [Concomitant]
     Route: 065
  14. ACUPAN [Concomitant]
  15. ZOLOFT [Concomitant]

REACTIONS (6)
  - Adrenal mass [Recovered/Resolved]
  - Joint injury [Recovered/Resolved]
  - Acute respiratory failure [Recovered/Resolved]
  - Myocardial ischaemia [Not Recovered/Not Resolved]
  - Asthenia [Recovered/Resolved]
  - Nasopharyngitis [Recovered/Resolved]
